FAERS Safety Report 5426979-7 (Version None)
Quarter: 2007Q3

REPORT INFORMATION
  Report Type: 
  Country: None (occurrence: None)
  Receive Date: 20070827
  Receipt Date: 20070823
  Transmission Date: 20080115
  Serious: Yes (Hospitalization, Other)
  Sender: FDA-Public Use
  Company Number: US-MERCK-0708USA04212

PATIENT
  Age: 79 Year
  Sex: Male
  Weight: 76 kg

DRUGS (15)
  1. MEVACOR [Suspect]
     Indication: HYPERCHOLESTEROLAEMIA
     Route: 048
  2. RANEXA [Suspect]
     Indication: ANGINA PECTORIS
     Route: 048
     Dates: start: 20061206, end: 20061213
  3. TOPROL-XL [Concomitant]
     Route: 065
  4. NITROGLYCERIN [Concomitant]
     Route: 065
  5. PLAVIX [Concomitant]
     Route: 065
  6. VITAMINS (UNSPECIFIED) [Concomitant]
     Route: 065
  7. UBIDECARENONE [Concomitant]
     Route: 065
  8. DIOVAN [Concomitant]
     Route: 065
  9. ZANTAC 150 [Concomitant]
     Route: 065
  10. ECOTRIN [Concomitant]
     Route: 065
  11. FLOMAX (MORNIFLUMATE) [Concomitant]
     Route: 065
  12. GLUCOPHAGE [Concomitant]
     Route: 065
  13. MAXEPA [Concomitant]
     Route: 065
  14. FOLTX [Concomitant]
     Route: 065
  15. LYCOPENE [Concomitant]
     Route: 065

REACTIONS (7)
  - ALANINE AMINOTRANSFERASE INCREASED [None]
  - ASPARTATE AMINOTRANSFERASE INCREASED [None]
  - DRUG ADMINISTRATION ERROR [None]
  - DRUG INTERACTION [None]
  - HYPOKALAEMIA [None]
  - RENAL FAILURE ACUTE [None]
  - RHABDOMYOLYSIS [None]
